FAERS Safety Report 8535614-0 (Version None)
Quarter: 2012Q3

REPORT INFORMATION
  Report Type: 
  Country: None (occurrence: None)
  Receive Date: 20120725
  Receipt Date: 20120716
  Transmission Date: 20120928
  Serious: Yes (Hospitalization)
  Sender: FDA-Public Use
  Company Number: US-BAYER-2012-014744

PATIENT
  Age: 48 Year
  Sex: Female
  Weight: 65.306 kg

DRUGS (4)
  1. YAZ [Suspect]
     Dosage: UNK
     Dates: start: 20070101, end: 20070401
  2. TEGRETOL [Concomitant]
     Dosage: 200 MG, UNK
     Dates: start: 19920101
  3. BENADRYL [Concomitant]
     Dosage: UNK
     Dates: start: 20070209
  4. CARBATROL [Concomitant]
     Dosage: UNK
     Dates: start: 19920101

REACTIONS (6)
  - PAIN [None]
  - FEAR [None]
  - INJURY [None]
  - DEEP VEIN THROMBOSIS [None]
  - ANXIETY [None]
  - EMOTIONAL DISTRESS [None]
